FAERS Safety Report 23151670 (Version 3)
Quarter: 2023Q4

REPORT INFORMATION
  Report Type: Spontaneous
  Country: US (occurrence: US)
  Receive Date: 20231107
  Receipt Date: 20231229
  Transmission Date: 20240109
  Serious: Yes (Hospitalization, Other)
  Sender: FDA-Public Use
  Company Number: US-AUROBINDO-AUR-APL-2023-067119

PATIENT
  Age: 61 Year
  Sex: Female

DRUGS (2)
  1. DIPHENHYDRAMINE [Suspect]
     Active Substance: DIPHENHYDRAMINE
     Indication: Product used for unknown indication
     Dosage: UNK
     Route: 065
  2. DICYCLOMINE [Suspect]
     Active Substance: DICYCLOMINE HYDROCHLORIDE
     Indication: Product used for unknown indication
     Dosage: UNK
     Route: 065

REACTIONS (9)
  - Delirium [Recovering/Resolving]
  - Depressed level of consciousness [Recovering/Resolving]
  - Electrocardiogram QRS complex prolonged [Recovering/Resolving]
  - Loss of consciousness [Recovering/Resolving]
  - Urinary retention [Recovering/Resolving]
  - Suicide attempt [Unknown]
  - Flushing [Recovering/Resolving]
  - Mydriasis [Unknown]
  - Intentional overdose [Unknown]
